FAERS Safety Report 6346913-5 (Version None)
Quarter: 2009Q3

REPORT INFORMATION
  Report Type: 
  Country: None (occurrence: None)
  Receive Date: 20090910
  Receipt Date: 20090903
  Transmission Date: 20100115
  Serious: Yes (Other)
  Sender: FDA-Public Use
  Company Number: US-ALLERGAN-0908566US

PATIENT
  Age: 68 Year
  Sex: Female
  Weight: 87.528 kg

DRUGS (2)
  1. COMBIGAN [Suspect]
     Indication: INTRAOCULAR PRESSURE INCREASED
     Dosage: 1 GTT, BID
     Route: 047
     Dates: start: 20090615, end: 20090616
  2. COMBIGAN [Suspect]
     Dosage: 1 GTT, QD
     Route: 047
     Dates: start: 20090617, end: 20090617

REACTIONS (13)
  - BLOOD PRESSURE DECREASED [None]
  - CHOKING [None]
  - DIARRHOEA [None]
  - DISLOCATION OF VERTEBRA [None]
  - DIZZINESS [None]
  - DYSPNOEA [None]
  - FACE INJURY [None]
  - HYPERHIDROSIS [None]
  - LIP SWELLING [None]
  - LOSS OF CONSCIOUSNESS [None]
  - MUSCLE STRAIN [None]
  - TOOTH FRACTURE [None]
  - VOMITING [None]
